FAERS Safety Report 14180041 (Version 2)
Quarter: 2018Q1

REPORT INFORMATION
  Report Type: Spontaneous
  Country: AU (occurrence: AU)
  Receive Date: 20171110
  Receipt Date: 20180131
  Transmission Date: 20180508
  Serious: Yes (Other)
  Sender: FDA-Public Use
  Company Number: AU-SYMPLMED PHARMACEUTICALS-2017SYMPLMED000483

PATIENT

DRUGS (11)
  1. COVERAM [Suspect]
     Active Substance: AMLODIPINE\PERINDOPRIL
     Indication: HYPERTENSION
     Dosage: 1 (10MG/5MG), QD
     Route: 048
     Dates: start: 20161020, end: 20161025
  2. COVERSYL                           /00790703/ [Suspect]
     Active Substance: PERINDOPRIL
     Dosage: 10MG, QD IN THE MORNING
     Route: 048
     Dates: start: 201709
  3. COVERSYL                           /00790703/ [Suspect]
     Active Substance: PERINDOPRIL
     Dosage: 10MG QD IN THE MORNING
     Route: 048
     Dates: start: 20161026, end: 201709
  4. COVERSYL                           /00790703/ [Suspect]
     Active Substance: PERINDOPRIL
     Dosage: 10 MG, TID
     Route: 048
     Dates: start: 201709, end: 201709
  5. COVERSYL                           /00790703/ [Suspect]
     Active Substance: PERINDOPRIL
     Dosage: 5 MG AT LUNCH TIME AND 5 MG AT BEDTIME
     Route: 048
     Dates: start: 201710, end: 201710
  6. GLIMEL                             /00145301/ [Concomitant]
     Indication: DIABETES MELLITUS
     Dosage: 5MG, QD
     Dates: start: 2002, end: 20171015
  7. COVERSYL                           /00790703/ [Suspect]
     Active Substance: PERINDOPRIL
     Indication: HYPERTENSION
     Dosage: 5 MG, QD AT NIGHT
     Route: 065
     Dates: start: 20161130, end: 201710
  8. COVERSYL                           /00790703/ [Suspect]
     Active Substance: PERINDOPRIL
     Dosage: 5 MG, QD AT NIGHT
     Route: 048
     Dates: start: 201710
  9. NUROFEN                            /00109201/ [Concomitant]
     Active Substance: IBUPROFEN
     Indication: ARTHRITIS
     Dosage: 200 MG, PRN
     Route: 065
  10. COVERAM [Suspect]
     Active Substance: AMLODIPINE\PERINDOPRIL
     Indication: PRODUCT USE ISSUE
  11. COVERSYL                           /00790703/ [Suspect]
     Active Substance: PERINDOPRIL
     Indication: HYPERTENSION
     Dosage: 10 MG, QD
     Route: 048
     Dates: start: 2000, end: 20161019

REACTIONS (27)
  - Eating disorder [Recovering/Resolving]
  - Tremor [Recovering/Resolving]
  - Blood glucose increased [Not Recovered/Not Resolved]
  - Pain in extremity [Recovered/Resolved]
  - Palpitations [Not Recovered/Not Resolved]
  - Oropharyngeal pain [Recovered/Resolved]
  - Thirst [Recovering/Resolving]
  - Pain [Recovered/Resolved]
  - Arthralgia [Recovered/Resolved]
  - Peripheral swelling [Recovered/Resolved]
  - Movement disorder [Recovering/Resolving]
  - Muscle spasms [Recovered/Resolved]
  - Abdominal pain upper [Recovered/Resolved]
  - Vaginal haemorrhage [Recovered/Resolved]
  - Gait inability [Recovering/Resolving]
  - Dry eye [Recovered/Resolved]
  - Fatigue [Not Recovered/Not Resolved]
  - Confusional state [Recovered/Resolved]
  - Headache [Not Recovered/Not Resolved]
  - Diabetic foot [Unknown]
  - Cough [Recovered/Resolved]
  - Blood pressure increased [Not Recovered/Not Resolved]
  - Dizziness [Not Recovered/Not Resolved]
  - Nausea [Recovered/Resolved]
  - Urine output decreased [Recovered/Resolved]
  - Overdose [Not Recovered/Not Resolved]
  - Product use issue [Unknown]

NARRATIVE: CASE EVENT DATE: 20161018
